FAERS Safety Report 8361442-5 (Version None)
Quarter: 2012Q2

REPORT INFORMATION
  Report Type: 
  Country: None (occurrence: None)
  Receive Date: 20120515
  Receipt Date: 20110831
  Transmission Date: 20120825
  Serious: Yes (Other)
  Sender: FDA-Public Use
  Company Number: US-ALEXION PHARMACEUTICALS INC.-A201101032

PATIENT
  Sex: Female
  Weight: 87.2 kg

DRUGS (6)
  1. SOLIRIS [Suspect]
     Indication: PAROXYSMAL NOCTURNAL HAEMOGLOBINURIA
     Dosage: 900 MG, Q2W
     Route: 042
     Dates: start: 20110218
  2. FOLTX [Concomitant]
     Dosage: 1 TABLET DAILY
     Route: 048
  3. COUMADIN [Concomitant]
     Dosage: 7.5 MG QIW
     Route: 048
  4. COUMADIN [Concomitant]
     Dosage: 10 MG TIW
     Route: 048
  5. AMBIEN [Concomitant]
     Dosage: 1 TABLET AT BEDTIME
     Route: 048
  6. PRILOSEC [Concomitant]
     Dosage: 20
     Route: 048

REACTIONS (7)
  - THROMBOCYTOPENIA [None]
  - NORMOCHROMIC NORMOCYTIC ANAEMIA [None]
  - LEUKOPENIA [None]
  - FATIGUE [None]
  - RETICULOCYTOSIS [None]
  - TENDERNESS [None]
  - ANAEMIA MACROCYTIC [None]
